FAERS Safety Report 5088633-3 (Version None)
Quarter: 2006Q3

REPORT INFORMATION
  Report Type: 
  Country: None (occurrence: None)
  Receive Date: 20060822
  Receipt Date: 20060810
  Transmission Date: 20061208
  Serious: Yes (Death, Life-Threatening, Other)
  Sender: FDA-Public Use
  Company Number: HQ2401321MAY2002

PATIENT
  Age: 75 Year
  Sex: Female
  Weight: 90 kg

DRUGS (22)
  1. MYLOTARG [Suspect]
     Indication: ACUTE MYELOID LEUKAEMIA
     Dosage: 18 MG ONE TIME PER ONE DOSE, INTRAVENOUS
     Route: 042
     Dates: start: 20020517, end: 20020517
  2. INSULIN HUMULIN 70/30 (INSULIN HUMAN/INSULIN HUMAN INJECTION, ISOPHANE [Concomitant]
  3. LASIX [Concomitant]
  4. K-DUR 10 [Concomitant]
  5. LOPRESSOR [Concomitant]
  6. SYNTHROID [Concomitant]
  7. PREMARIN [Concomitant]
  8. GLIPIZIDE [Concomitant]
  9. ACYCLOVIR [Concomitant]
  10. ALLOPURINOL [Concomitant]
  11. ACTIVASE [Concomitant]
  12. AMBIEN [Concomitant]
  13. ATENOLOL [Concomitant]
  14. BENADRYL [Concomitant]
  15. DIFLUCAN [Concomitant]
  16. INSULIN [Concomitant]
  17. HYDREA [Concomitant]
  18. LEVAQUIN [Concomitant]
  19. CALTRATE (CALCIUM CARBONATE) [Concomitant]
  20. MULTIVITAMINS, PLAIN (MULTIVITAMINS, PLAIN) [Concomitant]
  21. PROTONIX [Concomitant]
  22. ACETAMINOPHEN [Concomitant]

REACTIONS (15)
  - BLOOD CREATININE INCREASED [None]
  - BLOOD LACTATE DEHYDROGENASE INCREASED [None]
  - BLOOD SODIUM DECREASED [None]
  - CARDIO-RESPIRATORY ARREST [None]
  - FLUID OVERLOAD [None]
  - HAEMATOCRIT DECREASED [None]
  - HAEMOGLOBIN DECREASED [None]
  - HYPOGLYCAEMIA [None]
  - HYPOTENSION [None]
  - HYPOXIA [None]
  - INFUSION RELATED REACTION [None]
  - PARALYSIS FLACCID [None]
  - PLATELET COUNT DECREASED [None]
  - PYREXIA [None]
  - TACHYPNOEA [None]
